FAERS Safety Report 22215219 (Version 1)
Quarter: 2023Q2

REPORT INFORMATION
  Report Type: Spontaneous
  Country: US (occurrence: US)
  Receive Date: 20230415
  Receipt Date: 20230415
  Transmission Date: 20230721
  Serious: No
  Sender: FDA-Public Use
  Company Number: US-SPECGX-T202200433

PATIENT
  Sex: Female
  Weight: 69 kg

DRUGS (6)
  1. RESTORIL [Suspect]
     Active Substance: TEMAZEPAM
     Indication: Sleep disorder
     Dosage: 15 MILLIGRAM, QHS (ONCE EVERY NIGHT)
     Route: 065
     Dates: start: 20220311, end: 202203
  2. LYRICA [Concomitant]
     Active Substance: PREGABALIN
     Indication: Limb discomfort
     Dosage: 15 MILLIGRAM, TID
     Route: 065
  3. LEVOTHYROXINE [Concomitant]
     Active Substance: LEVOTHYROXINE
     Indication: Hypothyroidism
     Dosage: 50 MILLIGRAM, QD (ONE EVERY MORNING BEFORE BREAKFAST)
     Route: 065
  4. LIOTHYRONINE [Concomitant]
     Active Substance: LIOTHYRONINE
     Indication: Hypothyroidism
     Dosage: 5 MILLIGRAM, BID (EVERY MORNING)
     Route: 048
  5. FLUOXETINE [Concomitant]
     Active Substance: FLUOXETINE HYDROCHLORIDE
     Indication: Product used for unknown indication
     Dosage: 20 MILLIGRAM, QD
     Route: 065
  6. PRAVASTATIN [Concomitant]
     Active Substance: PRAVASTATIN
     Indication: Blood cholesterol increased
     Dosage: 20 MILLIGRAM, QD
     Route: 065

REACTIONS (3)
  - Gait disturbance [Unknown]
  - Enuresis [Unknown]
  - Drug ineffective [Unknown]
